FAERS Safety Report 4954102-1 (Version None)
Quarter: 2006Q1

REPORT INFORMATION
  Report Type: 
  Country: None (occurrence: None)
  Receive Date: 20060327
  Receipt Date: 20060313
  Transmission Date: 20060701
  Serious: Yes (Hospitalization)
  Sender: FDA-Public Use
  Company Number: US-GLAXOSMITHKLINE-B0416453A

PATIENT
  Age: 47 Year
  Sex: Male

DRUGS (10)
  1. LITHIUM [Suspect]
     Indication: DRUG USE FOR UNKNOWN INDICATION
     Dosage: 450MG TWICE PER DAY
  2. ZIPRASIDONE HCL [Suspect]
     Indication: DRUG USE FOR UNKNOWN INDICATION
     Route: 050
  3. DIVALPROEX SODIUM [Concomitant]
  4. LOSARTAN POTASSIUM [Concomitant]
     Dosage: 100MG PER DAY
  5. IBUPROFEN [Concomitant]
     Dosage: 800MG THREE TIMES PER DAY
  6. FUROSEMIDE [Concomitant]
     Dosage: 40MG PER DAY
  7. DIPHENHYDRAMINE [Concomitant]
  8. ACETAMINOPHEN [Concomitant]
     Dosage: 650MG THREE TIMES PER DAY
  9. IPRATROPIUM BROMIDE [Concomitant]
     Dosage: 2PUFF FOUR TIMES PER DAY
  10. FLUNISOLIDE [Concomitant]
     Dosage: 2PUFF TWICE PER DAY
     Route: 048

REACTIONS (25)
  - ABASIA [None]
  - AGITATION [None]
  - ALANINE AMINOTRANSFERASE INCREASED [None]
  - APHASIA [None]
  - ASPARTATE AMINOTRANSFERASE INCREASED [None]
  - BLOOD CREATINE PHOSPHOKINASE INCREASED [None]
  - BLOOD CREATININE INCREASED [None]
  - BLOOD IRON DECREASED [None]
  - BLOOD POTASSIUM ABNORMAL [None]
  - BLOOD SODIUM ABNORMAL [None]
  - DEPRESSED LEVEL OF CONSCIOUSNESS [None]
  - DIABETES INSIPIDUS [None]
  - DYSPNOEA [None]
  - INFECTION [None]
  - MANIA [None]
  - MYOGLOBINAEMIA [None]
  - MYOGLOBINURIA [None]
  - NEUROLEPTIC MALIGNANT SYNDROME [None]
  - PSYCHOTIC DISORDER [None]
  - PYREXIA [None]
  - SEPSIS [None]
  - SOMNOLENCE [None]
  - TACHYPNOEA [None]
  - URINE OUTPUT INCREASED [None]
  - WHITE BLOOD CELL COUNT INCREASED [None]
